FAERS Safety Report 9240357 (Version 1)
Quarter: 2013Q2

REPORT INFORMATION
  Report Type: Spontaneous
  Country: HU (occurrence: None)
  Receive Date: 20130417
  Receipt Date: 20130417
  Transmission Date: 20140414
  Serious: Yes (Hospitalization)
  Sender: FDA-Public Use
  Company Number: IPC201304-000131

PATIENT
  Age: 56 Year
  Sex: Female

DRUGS (3)
  1. CHLOROQUINE PHOSPHATE [Suspect]
     Indication: MIXED CONNECTIVE TISSUE DISEASE
     Dates: start: 200908
  2. METHYLPREDNISOLONE [Suspect]
     Indication: MIXED CONNECTIVE TISSUE DISEASE
     Dates: start: 200908
  3. METHOTREXATE [Suspect]
     Indication: MIXED CONNECTIVE TISSUE DISEASE
     Dates: start: 200908

REACTIONS (9)
  - Cardiotoxicity [None]
  - Asthenia [None]
  - Dizziness [None]
  - Hypotension [None]
  - Atrioventricular block complete [None]
  - Electrocardiogram QT prolonged [None]
  - Ventricular fibrillation [None]
  - Myopathy [None]
  - Cardiac arrest [None]
